FAERS Safety Report 4365104-0 (Version None)
Quarter: 2004Q2

REPORT INFORMATION
  Report Type: 
  Country: None (occurrence: None)
  Receive Date: 20040521
  Receipt Date: 20040422
  Transmission Date: 20050107
  Serious: No
  Sender: FDA-Public Use
  Company Number: D01200401403

PATIENT
  Age: 62 Year
  Sex: Male

DRUGS (7)
  1. FONDAPARINUX [Suspect]
     Indication: MYOCARDIAL INFARCTION
     Dosage: 2.5 MG QD; SUBCUTANEOUS
     Route: 058
     Dates: start: 20040415
  2. ASPIRIN [Concomitant]
  3. CLOPIDOGREL BISULFATE [Concomitant]
  4. BETA-BLOCKERS [Concomitant]
  5. NITRATES [Concomitant]
  6. CALCIUM CHANNEL BLOCKER [Concomitant]
  7. STATINS [Concomitant]

REACTIONS (2)
  - CATHETER RELATED COMPLICATION [None]
  - DRUG INEFFECTIVE [None]
